FAERS Safety Report 6491997-7 (Version None)
Quarter: 2009Q4

REPORT INFORMATION
  Report Type: 
  Country: None (occurrence: None)
  Receive Date: 20091208
  Receipt Date: 20091125
  Transmission Date: 20100525
  Serious: Yes (Other)
  Sender: FDA-Public Use
  Company Number: 8055355

PATIENT
  Age: 82 Year
  Sex: Female

DRUGS (2)
  1. PREDNISOLONE [Suspect]
     Indication: TEMPORAL ARTERITIS
     Dosage: 30 MG /D
  2. PREDNISOLONE [Suspect]
     Indication: TEMPORAL ARTERITIS
     Dosage: 7.5 MG /D

REACTIONS (5)
  - BLOOD CHOLESTEROL INCREASED [None]
  - DISORIENTATION [None]
  - DYSPEPSIA [None]
  - REFUSAL OF TREATMENT BY PATIENT [None]
  - TRANSIENT ISCHAEMIC ATTACK [None]
